FAERS Safety Report 10248900 (Version 2)
Quarter: 2014Q2

REPORT INFORMATION
  Report Type: Spontaneous
  Country: GB (occurrence: GB)
  Receive Date: 20140620
  Receipt Date: 20140620
  Transmission Date: 20141212
  Serious: Yes (Hospitalization, Other)
  Sender: FDA-Public Use
  Company Number: PHFR2014GB003811

PATIENT
  Sex: Female

DRUGS (12)
  1. CLOZARIL [Suspect]
     Indication: SCHIZOPHRENIA
     Dosage: 450 MG, DAILY
     Route: 048
     Dates: start: 1995, end: 20140524
  2. AMISULPRIDE [Concomitant]
     Dosage: 600 MG, DAILY
     Route: 048
  3. SODIUM VALPROATE [Concomitant]
     Dosage: 1000 MG, DAILY
     Route: 048
  4. DULOXETINE [Concomitant]
     Indication: DEPRESSED MOOD
     Dosage: 60 MG, DAILY
     Route: 048
     Dates: start: 201308
  5. DULOXETINE [Concomitant]
     Indication: ANXIETY
  6. DIAZEPAM [Concomitant]
     Dosage: 4 MG, DAILY
     Route: 048
  7. PIRENZEPINE [Concomitant]
     Indication: SALIVARY HYPERSECRETION
     Dosage: 50 MG, DAILY
     Route: 048
     Dates: start: 201402
  8. OMEPRAZOLE [Concomitant]
     Dosage: 40 MG, AM
  9. SIMVASTATIN [Concomitant]
     Dosage: 40 MG NOCTE
  10. BUDESONIDE [Concomitant]
     Dosage: UKN
  11. TIOTROPIUM [Concomitant]
     Dosage: UKN
  12. SENNA [Concomitant]
     Dosage: 7.5 MG NOCTE

REACTIONS (2)
  - Abdominal adhesions [Unknown]
  - Small intestinal obstruction [Recovered/Resolved]
